FAERS Safety Report 21821424 (Version 2)
Quarter: 2023Q1

REPORT INFORMATION
  Report Type: Spontaneous
  Country: US (occurrence: US)
  Receive Date: 20230105
  Receipt Date: 20230122
  Transmission Date: 20230417
  Serious: Yes (Other)
  Sender: FDA-Public Use
  Company Number: US-MALLINCKRODT-T202206683

PATIENT
  Age: 0 Year
  Sex: Male
  Weight: 7 kg

DRUGS (5)
  1. H.P. ACTHAR [Suspect]
     Active Substance: CORTICOTROPIN
     Indication: Tuberous sclerosis complex
     Dosage: 20 UNITS, TWICE DAILY FOR TWO WEEKS
     Route: 030
     Dates: start: 20221203
  2. H.P. ACTHAR [Suspect]
     Active Substance: CORTICOTROPIN
     Indication: Infantile spasms
     Dosage: 0.05 MILLILITER, QOD
     Route: 065
  3. OMEPRAZOLE [Concomitant]
     Active Substance: OMEPRAZOLE
     Indication: Product used for unknown indication
     Dosage: 20 MILLIGRAM
     Route: 065
  4. PREDNISOLONE [Concomitant]
     Active Substance: PREDNISOLONE
     Indication: Product used for unknown indication
     Dosage: 15 MILLIGRAM/ 5 MILLILITER
     Route: 065
  5. VIGABATRIN [Concomitant]
     Active Substance: VIGABATRIN
     Indication: Product used for unknown indication
     Dosage: 500 MILLIGRAM
     Route: 065

REACTIONS (7)
  - Seizure [Recovered/Resolved]
  - Condition aggravated [Recovered/Resolved]
  - Restlessness [Recovered/Resolved]
  - Discomfort [Recovered/Resolved]
  - Electroencephalogram abnormal [Unknown]
  - Constipation [Recovered/Resolved]
  - Product dose omission issue [Unknown]

NARRATIVE: CASE EVENT DATE: 20221201
